FAERS Safety Report 9408505 (Version 1)
Quarter: 2013Q3

REPORT INFORMATION
  Report Type: Report from Study
  Country: DE (occurrence: DE)
  Receive Date: 20130718
  Receipt Date: 20130718
  Transmission Date: 20140515
  Serious: Yes (Hospitalization)
  Sender: FDA-Public Use
  Company Number: DE-GILEAD-2013-0077470

PATIENT
  Age: 63 Year
  Sex: Male

DRUGS (4)
  1. EMTRICITABINE/RILPIVIRINE/TENOFOVIR DF [Suspect]
     Indication: HIV INFECTION
     Dosage: 1 DF, QD
     Route: 048
     Dates: start: 20110811, end: 20130617
  2. RAMIPRIL [Concomitant]
     Indication: HYPOTONIA
     Dosage: UNK
     Dates: start: 2006
  3. BISOPROLOL [Concomitant]
     Indication: HYPOTONIA
     Dosage: UNK
     Dates: start: 20120916
  4. MIRTAZAPINE [Concomitant]
     Indication: DEPRESSION
     Dosage: UNK
     Dates: start: 20121115

REACTIONS (3)
  - Major depression [Recovered/Resolved]
  - Suicidal ideation [Recovered/Resolved]
  - Alcohol abuse [Recovered/Resolved]
